FAERS Safety Report 14283569 (Version 1)
Quarter: 2017Q4

REPORT INFORMATION
  Report Type: Spontaneous
  Country: GB (occurrence: GB)
  Receive Date: 20171214
  Receipt Date: 20171214
  Transmission Date: 20180321
  Serious: Yes (Other)
  Sender: FDA-Public Use
  Company Number: GB-ACCORD-062139

PATIENT
  Age: 88 Year
  Sex: Male

DRUGS (14)
  1. VALPROIC ACID. [Concomitant]
     Active Substance: VALPROIC ACID
  2. ATORVASTATIN [Concomitant]
     Active Substance: ATORVASTATIN
  3. LEVETIRACETAM. [Suspect]
     Active Substance: LEVETIRACETAM
     Indication: PRODUCT USED FOR UNKNOWN INDICATION
  4. CLOPIDOGREL [Concomitant]
     Active Substance: CLOPIDOGREL BISULFATE
  5. IRON [Concomitant]
     Active Substance: IRON
  6. COLECALCIFEROL [Concomitant]
     Active Substance: CHOLECALCIFEROL
  7. FLUDROCORTISONE [Concomitant]
     Active Substance: FLUDROCORTISONE
  8. ACETYLSALICYLIC ACID [Concomitant]
     Active Substance: ASPIRIN
  9. CETIRIZINE [Suspect]
     Active Substance: CETIRIZINE HYDROCHLORIDE
     Indication: PRODUCT USED FOR UNKNOWN INDICATION
  10. ADCAL-D3 [Concomitant]
     Active Substance: CALCIUM CARBONATE\CHOLECALCIFEROL
  11. FUROSEMIDE. [Concomitant]
     Active Substance: FUROSEMIDE
  12. LEVOTHYROXINE. [Concomitant]
     Active Substance: LEVOTHYROXINE
  13. CARBIDOPA/LEVODOPA [Concomitant]
  14. FOLIC ACID. [Concomitant]
     Active Substance: FOLIC ACID

REACTIONS (4)
  - Seizure [Unknown]
  - Lower respiratory tract infection [Unknown]
  - Eosinophilia [Recovering/Resolving]
  - Addison^s disease [Recovering/Resolving]
